FAERS Safety Report 13499266 (Version 3)
Quarter: 2017Q3

REPORT INFORMATION
  Report Type: Spontaneous
  Country: JP (occurrence: JP)
  Receive Date: 20170501
  Receipt Date: 20170713
  Transmission Date: 20171127
  Serious: Yes (Other)
  Sender: FDA-Public Use
  Company Number: JP-GLAXOSMITHKLINE-JP2017JPN061268

PATIENT
  Age: 10 Year
  Sex: Male
  Weight: 27 kg

DRUGS (9)
  1. LAMICTAL [Suspect]
     Active Substance: LAMOTRIGINE
     Dosage: 12 MG, 1D
     Route: 048
     Dates: start: 20161020, end: 20161114
  2. LAMICTAL [Suspect]
     Active Substance: LAMOTRIGINE
     Dosage: 30 MG, 1D
     Route: 048
     Dates: start: 20170209
  3. LAMICTAL [Suspect]
     Active Substance: LAMOTRIGINE
     Indication: EPILEPSY
     Dosage: 2 MG, QD
     Route: 048
     Dates: start: 20160501, end: 20160801
  4. LAMICTAL [Suspect]
     Active Substance: LAMOTRIGINE
     Dosage: 16 MG, 1D
     Route: 048
     Dates: start: 20161115, end: 20161214
  5. LAMICTAL [Suspect]
     Active Substance: LAMOTRIGINE
     Dosage: 20 MG, 1D
     Route: 048
     Dates: start: 20161215, end: 20170208
  6. LAMICTAL [Suspect]
     Active Substance: LAMOTRIGINE
     Dosage: 4 MG, 1D
     Route: 048
     Dates: start: 20160802, end: 20160914
  7. LAMICTAL [Suspect]
     Active Substance: LAMOTRIGINE
     Dosage: 8 MG, 1D
     Route: 048
     Dates: start: 20160915, end: 20161019
  8. E KEPPRA [Concomitant]
     Active Substance: LEVETIRACETAM
     Dosage: 500 MG, BID
  9. SELENICA-R [Concomitant]
     Active Substance: VALPROATE SODIUM
     Dosage: 1000 MG, 1D

REACTIONS (1)
  - Haemorrhage subcutaneous [Recovered/Resolved]

NARRATIVE: CASE EVENT DATE: 201605
